FAERS Safety Report 10972735 (Version 1)
Quarter: 2015Q1

REPORT INFORMATION
  Report Type: Spontaneous
  Country: IT (occurrence: IT)
  Receive Date: 20150331
  Receipt Date: 20150331
  Transmission Date: 20150721
  Serious: Yes (Other)
  Sender: FDA-Public Use
  Company Number: IT-MYLANLABS-2015M1010330

PATIENT

DRUGS (3)
  1. PARACETAMOL [Suspect]
     Active Substance: ACETAMINOPHEN
     Route: 065
  2. AMIODARONE [Suspect]
     Active Substance: AMIODARONE
     Route: 065
  3. MICAFUNGIN [Suspect]
     Active Substance: MICAFUNGIN
     Route: 065

REACTIONS (3)
  - Rash [Unknown]
  - Hepatic failure [Unknown]
  - Anaemia [Unknown]
